FAERS Safety Report 6765049-2 (Version None)
Quarter: 2010Q2

REPORT INFORMATION
  Report Type: 
  Country: None (occurrence: None)
  Receive Date: 20100609
  Receipt Date: 20100609
  Transmission Date: 20101027
  Serious: Yes (Other)
  Sender: FDA-Public Use
  Company Number: None

PATIENT
  Age: 42 Year
  Sex: Female
  Weight: 71.6683 kg

DRUGS (1)
  1. BUDEPRION XL 150 MG TEVA USA [Suspect]
     Indication: DEPRESSION
     Dosage: 150 MG 2X DAY PO
     Route: 048
     Dates: start: 20100521, end: 20100608

REACTIONS (7)
  - ANXIETY [None]
  - CRYING [None]
  - DRUG EFFECT DECREASED [None]
  - EUPHORIC MOOD [None]
  - MOOD ALTERED [None]
  - MOROSE [None]
  - PRODUCT SUBSTITUTION ISSUE [None]
